FAERS Safety Report 13760175 (Version 1)
Quarter: 2017Q3

REPORT INFORMATION
  Report Type: Spontaneous
  Country: SE (occurrence: SE)
  Receive Date: 20170717
  Receipt Date: 20170717
  Transmission Date: 20171127
  Serious: Yes (Death, Other)
  Sender: FDA-Public Use
  Company Number: SE-TEVA-785276ISR

PATIENT
  Age: 78 Year
  Sex: Male

DRUGS (1)
  1. ALLOPURINOL TEVA [Suspect]
     Active Substance: ALLOPURINOL
     Dates: end: 20170225

REACTIONS (9)
  - Hepatic cirrhosis [Unknown]
  - Death [Fatal]
  - Weight decreased [Unknown]
  - Decreased appetite [Unknown]
  - Fatigue [Unknown]
  - General physical health deterioration [Unknown]
  - Abdominal pain [Unknown]
  - Diarrhoea [Unknown]
  - Hepatic failure [Unknown]

NARRATIVE: CASE EVENT DATE: 20170225
